FAERS Safety Report 5404233-7 (Version None)
Quarter: 2007Q3

REPORT INFORMATION
  Report Type: 
  Country: None (occurrence: None)
  Receive Date: 20070802
  Receipt Date: 20070720
  Transmission Date: 20080115
  Serious: Yes (Death, Other)
  Sender: FDA-Public Use
  Company Number: GB-ELI_LILLY_AND_COMPANY-GB200707005512

PATIENT
  Age: 39 Year
  Sex: Female

DRUGS (4)
  1. ZYPREXA [Suspect]
     Indication: BIPOLAR DISORDER
     Dosage: 20 MG, EACH EVENING
     Route: 065
     Dates: start: 20040701
  2. HALOPERIDOL [Concomitant]
     Indication: BIPOLAR DISORDER
     Dosage: 10 MG, EACH EVENING
     Route: 065
     Dates: start: 20040701
  3. ZOPICLONE [Concomitant]
     Indication: BIPOLAR DISORDER
     Dosage: 7.5 MG, EACH EVENING
     Route: 048
     Dates: start: 20040701
  4. ETHANOL [Concomitant]
     Dosage: UNK, UNKNOWN
     Route: 065

REACTIONS (5)
  - ACCIDENTAL OVERDOSE [None]
  - DEATH [None]
  - PRURITUS [None]
  - SWELLING FACE [None]
  - TREMOR [None]
